FAERS Safety Report 6228324-6 (Version None)
Quarter: 2009Q2

REPORT INFORMATION
  Report Type: 
  Country: None (occurrence: None)
  Receive Date: 20090612
  Receipt Date: 20090608
  Transmission Date: 20091009
  Serious: Yes (Other)
  Sender: FDA-Public Use
  Company Number: US-ABBOTT-09P-163-0578429-00

PATIENT
  Age: 44 Year
  Sex: Male

DRUGS (4)
  1. NORVIR [Suspect]
     Indication: HIV INFECTION
  2. PREZISTA [Suspect]
     Indication: HIV INFECTION
     Route: 048
     Dates: end: 20090301
  3. EPZICOM [Suspect]
     Indication: HIV INFECTION
  4. VIREAD [Suspect]
     Indication: HIV INFECTION

REACTIONS (3)
  - HEPATIC CIRRHOSIS [None]
  - NAUSEA [None]
  - VOMITING [None]
